FAERS Safety Report 6097700-7 (Version None)
Quarter: 2009Q1

REPORT INFORMATION
  Report Type: 
  Country: None (occurrence: None)
  Receive Date: 20090227
  Receipt Date: 20090127
  Transmission Date: 20090719
  Serious: No
  Sender: FDA-Public Use
  Company Number: US-BAYER-200910315BCC

PATIENT
  Age: 82 Year
  Sex: Male
  Weight: 82 kg

DRUGS (12)
  1. ALEVE (CAPLET) [Suspect]
     Indication: ROTATOR CUFF SYNDROME
     Dosage: TOTAL DAILY DOSE: 440 MG  UNIT DOSE: 220 MG
     Dates: start: 20090126
  2. SINGULAIR [Concomitant]
  3. HYZAAR [Concomitant]
  4. NEXIUM [Concomitant]
  5. PREDNISONE [Concomitant]
  6. CENTRUM SILVER [Concomitant]
  7. FOLIC ACID [Concomitant]
  8. FISH OIL [Concomitant]
  9. POTASSIUM CHLORIDE [Concomitant]
  10. CALCIUM [Concomitant]
  11. PULMICORT-100 [Concomitant]
  12. SPIRIVA [Concomitant]

REACTIONS (1)
  - DIARRHOEA [None]
